FAERS Safety Report 6882419-2 (Version None)
Quarter: 2010Q3

REPORT INFORMATION
  Report Type: 
  Country: None (occurrence: None)
  Receive Date: 20100727
  Receipt Date: 20100722
  Transmission Date: 20110219
  Serious: Yes (Hospitalization)
  Sender: FDA-Public Use
  Company Number: 1000014910

PATIENT
  Age: 51 Year
  Sex: Female
  Weight: 97.5 kg

DRUGS (18)
  1. SAVELLA [Suspect]
     Indication: FIBROMYALGIA
     Dosage: SEE IMAGE
     Route: 048
     Dates: start: 20100601, end: 20100602
  2. SAVELLA [Suspect]
     Indication: FIBROMYALGIA
     Dosage: SEE IMAGE
     Route: 048
     Dates: start: 20100603, end: 20100606
  3. SAVELLA [Suspect]
     Indication: FIBROMYALGIA
     Dosage: SEE IMAGE
     Route: 048
     Dates: start: 20100607, end: 20100614
  4. SAVELLA [Suspect]
     Indication: FIBROMYALGIA
     Dosage: SEE IMAGE
     Route: 048
     Dates: start: 20100618
  5. HUMIRA [Concomitant]
  6. PROTONIX (40 MILLIGRAM, TABLETS) [Concomitant]
  7. PREDNISONE (5 MILLIGRAM, TABLETS) [Concomitant]
  8. REQUIP (3 MILLIGRAM) [Concomitant]
  9. MOBIC (15 MILLIGRAM) [Concomitant]
  10. TALWIN NX [Concomitant]
  11. LOVASTATIN (10 MILLIGRAM) [Concomitant]
  12. NALOXONE (50 MILLIGRAM) [Concomitant]
  13. METHADONE (5 MILLIGRAM) [Concomitant]
  14. AUGMENTIN '125' [Concomitant]
  15. ARAVA (20 MILLIGRAM) [Concomitant]
  16. LIDODERM (TRANSDERMAL) [Concomitant]
  17. TEMAZEPAM (30 MILLIGRAM, CAPSULES) [Concomitant]
  18. ZYRTEC-D (TABLETS) [Concomitant]

REACTIONS (2)
  - HEPATIC STEATOSIS [None]
  - PANCREATITIS ACUTE [None]
